FAERS Safety Report 25115121 (Version 1)
Quarter: 2025Q1

REPORT INFORMATION
  Report Type: Spontaneous
  Country: FR (occurrence: FR)
  Receive Date: 20250324
  Receipt Date: 20250324
  Transmission Date: 20250409
  Serious: Yes (Death)
  Sender: PURDUE
  Company Number: FR-PURDUE-USA-2025-0316233

PATIENT
  Age: 21 Year
  Sex: Female

DRUGS (1)
  1. MORPHINE SULFATE [Suspect]
     Active Substance: MORPHINE SULFATE
     Indication: Product used for unknown indication
     Route: 048
     Dates: start: 20230724, end: 20230724

REACTIONS (3)
  - Intentional overdose [Fatal]
  - Cardio-respiratory arrest [Fatal]
  - Drug use disorder [Fatal]

NARRATIVE: CASE EVENT DATE: 20230724
